FAERS Safety Report 14634540 (Version 1)
Quarter: 2018Q1

REPORT INFORMATION
  Report Type: Spontaneous
  Country: US (occurrence: US)
  Receive Date: 20180313
  Receipt Date: 20180313
  Transmission Date: 20180509
  Serious: No
  Sender: FDA-Public Use
  Company Number: None

PATIENT
  Age: 56 Year
  Sex: Female

DRUGS (1)
  1. STELARA [Suspect]
     Active Substance: USTEKINUMAB
     Indication: PSORIASIS
     Dosage: INJ 45MG AT WEEK 4, THEN Q 12 WEEKS SQ
     Route: 058
     Dates: start: 20171204

REACTIONS (7)
  - Eye irritation [None]
  - Pruritus [None]
  - Lacrimation increased [None]
  - Discomfort [None]
  - Infection [None]
  - Dry skin [None]
  - Insomnia [None]

NARRATIVE: CASE EVENT DATE: 20180109
